FAERS Safety Report 7481056-9 (Version None)
Quarter: 2011Q2

REPORT INFORMATION
  Report Type: 
  Country: None (occurrence: None)
  Receive Date: 20110516
  Receipt Date: 20110118
  Transmission Date: 20111010
  Serious: Yes (Other)
  Sender: FDA-Public Use
  Company Number: US-BAYER-201037530NA

PATIENT
  Age: 17 Year
  Sex: Female

DRUGS (6)
  1. ZITHROMAX [Concomitant]
  2. ADDERALL XR 10 [Concomitant]
     Indication: ATTENTION DEFICIT/HYPERACTIVITY DISORDER
     Dosage: 30 MG, UNK
     Route: 048
  3. PEPCID [CALCIUM CARBONATE,FAMOTIDINE,MAGNESIUM HYDROXIDE] [Concomitant]
  4. ACETAMINOPHEN [Concomitant]
  5. YAZ [Suspect]
     Indication: OLIGOMENORRHOEA
     Route: 048
     Dates: start: 20070701, end: 20080215
  6. YASMIN [Concomitant]

REACTIONS (2)
  - CHOLECYSTITIS CHRONIC [None]
  - CHOLELITHIASIS [None]
